FAERS Safety Report 6980168-3 (Version None)
Quarter: 2010Q3

REPORT INFORMATION
  Report Type: 
  Country: None (occurrence: None)
  Receive Date: 20100914
  Receipt Date: 20100903
  Transmission Date: 20110219
  Serious: Yes (Hospitalization)
  Sender: FDA-Public Use
  Company Number: US-RB-010388-10

PATIENT
  Age: 75 Year
  Sex: Male

DRUGS (4)
  1. SUBOXONE [Suspect]
     Route: 060
     Dates: start: 20100501, end: 20100711
  2. SUBOXONE [Suspect]
     Indication: DRUG DEPENDENCE
     Route: 060
     Dates: start: 20100712
  3. ATENOLOL [Concomitant]
     Indication: HYPERTENSION
     Dosage: DOSING DETAILS UNKNOWN
     Route: 065
  4. EFFEXOR [Concomitant]
     Indication: DEPRESSION
     Dosage: DOSING DETAILS UNKNOWN
     Route: 065

REACTIONS (13)
  - CEREBROVASCULAR ACCIDENT [None]
  - CONTUSION [None]
  - COUGH [None]
  - DIZZINESS [None]
  - FALL [None]
  - INCREASED UPPER AIRWAY SECRETION [None]
  - LOWER RESPIRATORY TRACT INFECTION [None]
  - MUSCLE INJURY [None]
  - NASOPHARYNGITIS [None]
  - OROPHARYNGEAL PAIN [None]
  - PHARYNGITIS STREPTOCOCCAL [None]
  - SOMNOLENCE [None]
  - VERTIGO [None]
